FAERS Safety Report 25996589 (Version 1)
Quarter: 2025Q4

REPORT INFORMATION
  Report Type: Spontaneous
  Country: US (occurrence: US)
  Receive Date: 20251104
  Receipt Date: 20251104
  Transmission Date: 20260117
  Serious: No
  Sender: DR REDDYS
  Company Number: US-DRL-USA-USA/2025/10/015578

PATIENT
  Age: 19 Year
  Sex: Female

DRUGS (3)
  1. ZENATANE [Suspect]
     Active Substance: ISOTRETINOIN
     Indication: Acne
     Route: 048
     Dates: start: 20250619
  2. ZENATANE [Suspect]
     Active Substance: ISOTRETINOIN
     Route: 048
  3. ZENATANE [Suspect]
     Active Substance: ISOTRETINOIN
     Route: 048
     Dates: end: 20250911

REACTIONS (3)
  - Headache [Recovered/Resolved]
  - Vision blurred [Unknown]
  - Concussion [Unknown]

NARRATIVE: CASE EVENT DATE: 20250904
